FAERS Safety Report 9406602 (Version 2)
Quarter: 2013Q3

REPORT INFORMATION
  Report Type: Spontaneous
  Country: JP (occurrence: JP)
  Receive Date: 20130718
  Receipt Date: 20130722
  Transmission Date: 20140515
  Serious: Yes (Hospitalization, Disabling)
  Sender: FDA-Public Use
  Company Number: JP-009507513-1307JPN008894

PATIENT
  Age: 77 Year
  Sex: Female

DRUGS (1)
  1. BONALON [Suspect]
     Indication: OSTEOPOROSIS
     Dosage: 5 MG, QD
     Route: 048
     Dates: start: 200508, end: 201106

REACTIONS (3)
  - Sepsis [Unknown]
  - Mastication disorder [Unknown]
  - Osteonecrosis of jaw [Unknown]
